FAERS Safety Report 8381163-2 (Version None)
Quarter: 2012Q2

REPORT INFORMATION
  Report Type: 
  Country: None (occurrence: None)
  Receive Date: 20120523
  Receipt Date: 20120518
  Transmission Date: 20120825
  Serious: Yes (Other)
  Sender: FDA-Public Use
  Company Number: PHHY2012JP035460

PATIENT
  Sex: Female

DRUGS (4)
  1. DIOVAN [Suspect]
     Dosage: 40 MG, DAILY
     Route: 048
  2. DEPAS [Concomitant]
     Dosage: UNK
     Route: 048
  3. SYMBICORT [Concomitant]
     Dosage: UNK UKN, UNK
  4. STEROID [Concomitant]
     Dosage: AS NEEDED BASIS

REACTIONS (1)
  - WHITE BLOOD CELL COUNT DECREASED [None]
